FAERS Safety Report 6948292-9 (Version None)
Quarter: 2010Q3

REPORT INFORMATION
  Report Type: 
  Country: None (occurrence: None)
  Receive Date: 20100828
  Receipt Date: 20100816
  Transmission Date: 20110219
  Serious: Yes (Other)
  Sender: FDA-Public Use
  Company Number: ES-ELI_LILLY_AND_COMPANY-ES201008004869

PATIENT
  Sex: Female

DRUGS (2)
  1. FORTEO [Suspect]
     Indication: OSTEOPOROSIS
     Dosage: 20 UG, DAILY (1/D)
     Route: 058
     Dates: start: 20090201
  2. CALCIO [Concomitant]
     Dosage: UNK, DAILY (1/D)
     Route: 048

REACTIONS (5)
  - ANXIETY [None]
  - ARTHRALGIA [None]
  - BRONCHIECTASIS [None]
  - FATIGUE [None]
  - HIATUS HERNIA [None]
